FAERS Safety Report 7381889-3 (Version None)
Quarter: 2011Q1

REPORT INFORMATION
  Report Type: 
  Country: None (occurrence: None)
  Receive Date: 20110322
  Receipt Date: 20110309
  Transmission Date: 20110831
  Serious: Yes (Other)
  Sender: FDA-Public Use
  Company Number: 1000019334

PATIENT
  Age: 42 Year
  Sex: Female

DRUGS (2)
  1. PROZAC [Concomitant]
  2. ESCITALOPRAM OXALATE [Suspect]
     Indication: DEPRESSION
     Dosage: ORAL
     Route: 048

REACTIONS (8)
  - INSOMNIA [None]
  - FEELING ABNORMAL [None]
  - ANXIETY [None]
  - SUICIDAL IDEATION [None]
  - BRUXISM [None]
  - HEADACHE [None]
  - ANGER [None]
  - IRRITABILITY [None]
